FAERS Safety Report 4806662-9 (Version None)
Quarter: 2005Q4

REPORT INFORMATION
  Report Type: 
  Country: None (occurrence: None)
  Receive Date: 20051019
  Receipt Date: 20050929
  Transmission Date: 20060501
  Serious: Yes (Hospitalization, Other)
  Sender: FDA-Public Use
  Company Number: US_0411107617

PATIENT
  Age: 45 Year
  Sex: Male

DRUGS (21)
  1. ZYPREXA [Suspect]
     Indication: DEPRESSION
     Dosage: 15 MG
     Dates: start: 20010101, end: 20020201
  2. DURAGESIC-100 [Concomitant]
  3. LORTAB [Concomitant]
  4. KLONOPIN [Concomitant]
  5. STOOL SOFTENER (DOCUSATE SODIUM) [Concomitant]
  6. QUETIAPINE FUMARATE [Concomitant]
  7. RISPERIDONE [Concomitant]
  8. CITALOPRAM HYDROBROMIDE [Concomitant]
  9. MIRTAZAPINE [Concomitant]
  10. VALIUM [Concomitant]
  11. PHENERGAN [Concomitant]
  12. DEMEROL [Concomitant]
  13. ASPIRIN [Concomitant]
  14. LEVAQUIN [Concomitant]
  15. NEURONTIN [Concomitant]
  16. VANTIN [Concomitant]
  17. AMBIEN [Concomitant]
  18. REMERON [Concomitant]
  19. ULTRAM [Concomitant]
  20. VIOXX [Concomitant]
  21. LOVENOX [Concomitant]

REACTIONS (13)
  - ABDOMINAL PAIN [None]
  - ACUTE MYOCARDIAL INFARCTION [None]
  - BLOOD GLUCOSE INCREASED [None]
  - DIARRHOEA [None]
  - DYSPNOEA [None]
  - HYPERCHOLESTEROLAEMIA [None]
  - HYPERTENSION [None]
  - ILEUS [None]
  - LOBAR PNEUMONIA [None]
  - PANCREATITIS ACUTE [None]
  - PLEURITIC PAIN [None]
  - PULMONARY EMBOLISM [None]
  - VISION BLURRED [None]
